FAERS Safety Report 7509563-0 (Version None)
Quarter: 2011Q2

REPORT INFORMATION
  Report Type: 
  Country: None (occurrence: None)
  Receive Date: 20110527
  Receipt Date: 20110117
  Transmission Date: 20111010
  Serious: Yes (Hospitalization, Other)
  Sender: FDA-Public Use
  Company Number: US-BAYER-201031754NA

PATIENT
  Age: 17 Year
  Sex: Female
  Weight: 88.435 kg

DRUGS (10)
  1. YASMIN [Suspect]
     Route: 048
     Dates: start: 20080101, end: 20080101
  2. DROSPIRENONE AND ETHINYL ESTRADIOL [Suspect]
     Dates: start: 20080101, end: 20080101
  3. TOPROL-XL [Concomitant]
     Dosage: UNK
     Dates: start: 20080901
  4. IBUPROFEN [Concomitant]
  5. METOPROLOL TARTRATE [Concomitant]
     Indication: CARDIAC DISORDER
  6. VICODIN [Concomitant]
     Dosage: UNK
     Dates: start: 20080901
  7. LEXAPRO [Concomitant]
     Dosage: UNK
     Dates: start: 20081101
  8. YAZ [Suspect]
     Route: 048
  9. NEXIUM [Concomitant]
     Dosage: UNK
     Dates: start: 20080101
  10. LOVENOX [Concomitant]
     Dosage: UNK
     Dates: start: 20080901

REACTIONS (4)
  - PAIN [None]
  - INJURY [None]
  - ACNE [None]
  - PULMONARY EMBOLISM [None]
